FAERS Safety Report 6338965-3 (Version None)
Quarter: 2009Q3

REPORT INFORMATION
  Report Type: 
  Country: None (occurrence: None)
  Receive Date: 20090903
  Receipt Date: 20090827
  Transmission Date: 20100115
  Serious: Yes (Hospitalization)
  Sender: FDA-Public Use
  Company Number: US-KINGPHARMUSA00001-K200901060

PATIENT
  Sex: Female
  Weight: 55 kg

DRUGS (5)
  1. LEVOXYL [Suspect]
     Indication: HYPOTHYROIDISM
     Dosage: 75 MCG, QD
     Route: 048
     Dates: start: 20081223
  2. ZOLEDRONIC ACID [Suspect]
     Indication: MULTIPLE MYELOMA
     Dosage: 3 MG, QMON
     Route: 042
     Dates: start: 20080430
  3. REVLIMID [Suspect]
     Indication: MULTIPLE MYELOMA
     Dosage: 25 MG, QD
     Route: 048
     Dates: start: 20070815, end: 20090724
  4. VITAMIN D [Concomitant]
  5. CALCIUM [Concomitant]

REACTIONS (7)
  - ANAEMIA [None]
  - BLOOD THYROID STIMULATING HORMONE DECREASED [None]
  - DEHYDRATION [None]
  - DIARRHOEA [None]
  - OVERDOSE [None]
  - RENAL TUBULAR NECROSIS [None]
  - SYNCOPE [None]
